FAERS Safety Report 8100469-5 (Version None)
Quarter: 2012Q1

REPORT INFORMATION
  Report Type: 
  Country: None (occurrence: None)
  Receive Date: 20120129
  Receipt Date: 20111101
  Transmission Date: 20120608
  Serious: No
  Sender: FDA-Public Use
  Company Number: US-ABBOTT-11P-163-0870432-00

PATIENT
  Age: 25 Year
  Sex: Male

DRUGS (4)
  1. HUMIRA [Suspect]
     Dosage: NOT REPORTED
  2. CIPROFLOXACIN [Concomitant]
     Indication: FISTULA
     Route: 048
  3. HUMIRA [Suspect]
     Indication: CROHN'S DISEASE
     Dosage: LOADING DOSE
     Dates: start: 20111101
  4. FLAGYL [Concomitant]
     Indication: FISTULA
     Dosage: DAILY
     Route: 048

REACTIONS (3)
  - DIZZINESS [None]
  - RASH MACULAR [None]
  - CHILLS [None]
